FAERS Safety Report 15278115 (Version 1)
Quarter: 2018Q3

REPORT INFORMATION
  Report Type: Report from Study
  Country: US (occurrence: US)
  Receive Date: 20180814
  Receipt Date: 20180814
  Transmission Date: 20181010
  Serious: Yes (Hospitalization, Disabling, Other)
  Sender: FDA-Public Use
  Company Number: US-SAKK-2018SA159527AA

PATIENT
  Age: 58 Year
  Sex: Female

DRUGS (3)
  1. LEMTRADA [Suspect]
     Active Substance: ALEMTUZUMAB
     Indication: MULTIPLE SCLEROSIS
     Dosage: 12 MG, QD
     Route: 041
     Dates: start: 20151026, end: 20151030
  2. TERIFLUNOMIDE [Suspect]
     Active Substance: TERIFLUNOMIDE
  3. LEMTRADA [Suspect]
     Active Substance: ALEMTUZUMAB
     Dosage: 12 UNK
     Route: 041
     Dates: start: 20171031, end: 20171102

REACTIONS (5)
  - Gait disturbance [Unknown]
  - Vision blurred [Not Recovered/Not Resolved]
  - Peripheral coldness [Not Recovered/Not Resolved]
  - Hyperthyroidism [Unknown]
  - Blood thyroid stimulating hormone increased [Unknown]

NARRATIVE: CASE EVENT DATE: 2018
